FAERS Safety Report 18550286 (Version 1)
Quarter: 2020Q4

REPORT INFORMATION
  Report Type: Spontaneous
  Country: HR (occurrence: HR)
  Receive Date: 20201126
  Receipt Date: 20201126
  Transmission Date: 20210114
  Serious: Yes (Life-Threatening, Other)
  Sender: FDA-Public Use
  Company Number: HR-TEVA-2020-HR-1852019

PATIENT
  Age: 48 Year
  Sex: Female

DRUGS (1)
  1. PREGABALIN. [Suspect]
     Active Substance: PREGABALIN
     Dosage: 8400 MG
     Route: 048
     Dates: start: 20201015, end: 20201015

REACTIONS (4)
  - Suicide attempt [Unknown]
  - Dyspnoea [Unknown]
  - Intentional overdose [Unknown]
  - Dyskinesia [Unknown]

NARRATIVE: CASE EVENT DATE: 20201015
